FAERS Safety Report 6389549-2 (Version None)
Quarter: 2009Q4

REPORT INFORMATION
  Report Type: 
  Country: None (occurrence: None)
  Receive Date: 20091006
  Receipt Date: 20090923
  Transmission Date: 20100525
  Serious: Yes (Other)
  Sender: FDA-Public Use
  Company Number: ES-ABBOTT-09P-144-0598871-00

PATIENT
  Age: 28 Year
  Sex: Female

DRUGS (3)
  1. HUMIRA [Suspect]
     Indication: PSORIASIS
     Route: 058
     Dates: start: 20090917
  2. METHOTREXATE [Concomitant]
     Indication: PSORIASIS
  3. LEDERFOLIN [Concomitant]
     Indication: PSORIASIS

REACTIONS (6)
  - DIZZINESS [None]
  - DYSKINESIA [None]
  - LOSS OF CONSCIOUSNESS [None]
  - PAIN IN EXTREMITY [None]
  - PRESYNCOPE [None]
  - TREMOR [None]
